FAERS Safety Report 10629651 (Version 1)
Quarter: 2014Q4

REPORT INFORMATION
  Report Type: Spontaneous
  Country: US (occurrence: US)
  Receive Date: 20141205
  Receipt Date: 20141205
  Transmission Date: 20150529
  Serious: No
  Sender: FDA-Public Use
  Company Number: US-BRISTOL-MYERS SQUIBB COMPANY-21477740

PATIENT
  Age: 84 Year
  Sex: Female

DRUGS (1)
  1. ABILIFY [Suspect]
     Active Substance: ARIPIPRAZOLE
     Indication: BIPOLAR DISORDER

REACTIONS (5)
  - Incoherent [Unknown]
  - Somnolence [Unknown]
  - Hypotension [Unknown]
  - Appetite disorder [Unknown]
  - Drug dose omission [Unknown]
